FAERS Safety Report 7301170-8 (Version None)
Quarter: 2011Q1

REPORT INFORMATION
  Report Type: 
  Country: None (occurrence: None)
  Receive Date: 20110218
  Receipt Date: 20101110
  Transmission Date: 20110831
  Serious: No
  Sender: FDA-Public Use
  Company Number: US-BRISTOL-MYERS SQUIBB COMPANY-15380850

PATIENT
  Age: 8 Year
  Sex: Male

DRUGS (2)
  1. ABILIFY [Suspect]
     Indication: AUTISM
     Route: 048
  2. CLONIDINE [Concomitant]

REACTIONS (1)
  - AGGRESSION [None]
